FAERS Safety Report 25077148 (Version 2)
Quarter: 2025Q1

REPORT INFORMATION
  Report Type: Report from Study
  Country: DE (occurrence: DE)
  Receive Date: 20250314
  Receipt Date: 20250315
  Transmission Date: 20250408
  Serious: Yes (Hospitalization)
  Sender: ABBVIE
  Company Number: DE-ABBVIE-6175066

PATIENT
  Age: 68 Year
  Sex: Male

DRUGS (1)
  1. FOSCARBIDOPA\FOSLEVODOPA [Suspect]
     Active Substance: FOSCARBIDOPA\FOSLEVODOPA
     Indication: Parkinson^s disease
     Route: 058
     Dates: start: 20250224

REACTIONS (2)
  - Jaw fracture [Unknown]
  - Fall [Unknown]

NARRATIVE: CASE EVENT DATE: 20250310
